FAERS Safety Report 7451115-5 (Version None)
Quarter: 2011Q2

REPORT INFORMATION
  Report Type: 
  Country: None (occurrence: None)
  Receive Date: 20110422
  Receipt Date: 20110420
  Transmission Date: 20111010
  Serious: Yes (Hospitalization, Other)
  Sender: FDA-Public Use
  Company Number: 201110393

PATIENT
  Age: 17 Year
  Sex: Female

DRUGS (1)
  1. LIORESAL [Suspect]
     Indication: MUSCLE SPASTICITY
     Dosage: DAILY, INTRATHECAL
     Route: 037

REACTIONS (10)
  - WITHDRAWAL SYNDROME [None]
  - CONTUSION [None]
  - IMPLANT SITE EFFUSION [None]
  - PANCREATITIS [None]
  - CLONUS [None]
  - IMPLANT SITE INFECTION [None]
  - WOUND DEHISCENCE [None]
  - HYPERTONIA [None]
  - IMPLANT SITE HAEMATOMA [None]
  - DRUG WITHDRAWAL SYNDROME [None]
